FAERS Safety Report 7898691-6 (Version None)
Quarter: 2011Q4

REPORT INFORMATION
  Report Type: 
  Country: None (occurrence: None)
  Receive Date: 20111107
  Receipt Date: 20111103
  Transmission Date: 20120403
  Serious: Yes (Hospitalization)
  Sender: FDA-Public Use
  Company Number: US-VERTEX PHARMACEUTICALS INC.-AE-2011-002340

PATIENT
  Age: 62 Year
  Sex: Female

DRUGS (4)
  1. RIBAVIRIN [Concomitant]
     Indication: HEPATITIS C
     Dates: start: 20110101, end: 20111001
  2. PEGASYS [Concomitant]
     Indication: HEPATITIS C
     Dates: start: 20110101, end: 20111001
  3. DIOVAN HCT [Concomitant]
  4. INCIVEK [Suspect]
     Indication: HEPATITIS C
     Dates: start: 20110101, end: 20111001

REACTIONS (2)
  - HAEMOGLOBIN DECREASED [None]
  - BLOOD SODIUM DECREASED [None]
